FAERS Safety Report 9473661 (Version 1)
Quarter: 2013Q3

REPORT INFORMATION
  Report Type: Spontaneous
  Country: US (occurrence: US)
  Receive Date: 20130823
  Receipt Date: 20130823
  Transmission Date: 20140515
  Serious: Yes (Other)
  Sender: FDA-Public Use
  Company Number: US-BRISTOL-MYERS SQUIBB COMPANY-16850539

PATIENT
  Sex: Female

DRUGS (2)
  1. SPRYCEL [Suspect]
     Dosage: INTERRUPTED ON 10-AUG-2012
     Dates: start: 201205
  2. ZOFRAN [Concomitant]

REACTIONS (1)
  - Pleural effusion [Unknown]
